FAERS Safety Report 6293759-2 (Version None)
Quarter: 2009Q3

REPORT INFORMATION
  Report Type: 
  Country: None (occurrence: None)
  Receive Date: 20090803
  Receipt Date: 20090721
  Transmission Date: 20100115
  Serious: Yes (Hospitalization)
  Sender: FDA-Public Use
  Company Number: AR-AMGEN-US357013

PATIENT
  Sex: Female
  Weight: 52 kg

DRUGS (4)
  1. ENBREL [Suspect]
     Indication: RHEUMATOID ARTHRITIS
     Route: 058
     Dates: start: 20070202
  2. AMLODIPINE [Concomitant]
     Indication: HYPERTENSION
     Route: 065
  3. DELTISONA B [Concomitant]
     Route: 065
  4. SYMBICORT [Concomitant]
     Route: 055

REACTIONS (2)
  - BRONCHOSPASM [None]
  - UVEITIS [None]
